FAERS Safety Report 5062427-7 (Version None)
Quarter: 2006Q3

REPORT INFORMATION
  Report Type: 
  Country: None (occurrence: None)
  Receive Date: 20060721
  Receipt Date: 20060704
  Transmission Date: 20061208
  Serious: Yes (Hospitalization)
  Sender: FDA-Public Use
  Company Number: FR200603002754

PATIENT
  Age: 83 Year
  Sex: Female
  Weight: 57.4254 kg

DRUGS (10)
  1. FORTEO [Suspect]
     Indication: OSTEOPOROSIS
     Dosage: 20 UG DAILY (1/D), SUBCUTANEOUS
     Route: 058
     Dates: start: 20051001, end: 20060228
  2. FORTEO [Suspect]
     Indication: OSTEOPOROSIS
     Dosage: 20 UG DAILY (1/D), SUBCUTANEOUS
     Route: 058
     Dates: start: 20060308
  3. FORTEO PEN(FORTEO PEN) [Concomitant]
  4. COZAAR [Concomitant]
  5. DAFLON (DIOSMIN, HESPERIDIN) [Concomitant]
  6. ACETAMINOPHEN [Concomitant]
  7. ARICEPT [Concomitant]
  8. ATARAX [Concomitant]
  9. FERROUS SULFATE TAB [Concomitant]
  10. FIXICAL VITAMINE D3 (CALCIUM CARBONATE, COLECALCIFEROL [Concomitant]

REACTIONS (9)
  - ANGIOPATHY [None]
  - BALANCE DISORDER [None]
  - DEMENTIA [None]
  - DIZZINESS [None]
  - HYPOAESTHESIA [None]
  - LACUNAR INFARCTION [None]
  - POST PROCEDURAL COMPLICATION [None]
  - PRURITUS [None]
  - TRANSIENT ISCHAEMIC ATTACK [None]
